FAERS Safety Report 26098490 (Version 1)
Quarter: 2025Q4

REPORT INFORMATION
  Report Type: Spontaneous
  Country: EU (occurrence: EU)
  Receive Date: 20251127
  Receipt Date: 20251127
  Transmission Date: 20260117
  Serious: Yes (Other)
  Sender: BAUSCH AND LOMB
  Company Number: EU-BAUSCH-BH-2025-021282

PATIENT
  Age: 85 Year
  Sex: Female

DRUGS (10)
  1. BUDESONIDE [Suspect]
     Active Substance: BUDESONIDE
     Indication: Colitis microscopic
     Dosage: UNK
     Route: 065
  2. LOPERAMIDE [Suspect]
     Active Substance: LOPERAMIDE
     Indication: Diarrhoea
     Dosage: UNK
     Route: 065
     Dates: start: 2021
  3. LOPERAMIDE [Suspect]
     Active Substance: LOPERAMIDE
     Indication: Anal incontinence
  4. DULOXETINE [Suspect]
     Active Substance: DULOXETINE
     Indication: Depression
     Dosage: GRADUAL DOSE REDUCTION
     Route: 065
     Dates: start: 2021
  5. DULOXETINE [Suspect]
     Active Substance: DULOXETINE
     Indication: Colitis microscopic
  6. LOVASTATIN [Suspect]
     Active Substance: LOVASTATIN
     Indication: Dyslipidaemia
     Dosage: UNK, UNKNOWN
     Route: 065
  7. ACENOCOUMAROL [Concomitant]
     Active Substance: ACENOCOUMAROL
     Indication: Product used for unknown indication
     Dosage: UNK, UNKNOWN
  8. DAPAGLIFLOZIN [Concomitant]
     Active Substance: DAPAGLIFLOZIN
     Indication: Type 2 diabetes mellitus
     Dosage: UNK, UNKNOWN
  9. METFORMIN [Concomitant]
     Active Substance: METFORMIN HYDROCHLORIDE
     Indication: Type 2 diabetes mellitus
     Dosage: UNK, UNKNOWN
  10. TORSEMIDE [Concomitant]
     Active Substance: TORSEMIDE
     Indication: Product used for unknown indication
     Dosage: UNK, UNKNOWN

REACTIONS (7)
  - Colitis microscopic [Recovered/Resolved]
  - Weight decreased [Recovered/Resolved]
  - Urge incontinence [Unknown]
  - Drug ineffective [Unknown]
  - Cognitive disorder [Unknown]
  - Diarrhoea [Recovered/Resolved]
  - Anal incontinence [Recovered/Resolved]

NARRATIVE: CASE EVENT DATE: 20210101
